FAERS Safety Report 8865575 (Version 1)
Quarter: 2012Q4

REPORT INFORMATION
  Report Type: 
  Country: US (occurrence: US)
  Receive Date: 20121024
  Receipt Date: 20121024
  Transmission Date: 20130627
  Serious: No
  Sender: FDA-Public Use
  Company Number: US-AMGEN-USASP2012003558

PATIENT
  Age: 75 Year
  Sex: Female

DRUGS (8)
  1. ENBREL [Suspect]
     Indication: PRODUCT USED FOR UNKNOWN INDICATION
     Dosage: 50 mg, qwk
  2. LISINOPRIL [Concomitant]
     Dosage: 20 mg, UNK
  3. DILTIAZEM [Concomitant]
     Dosage: 120 mg, UNK
  4. FOLIC ACID [Concomitant]
     Dosage: 1 mg, UNK
  5. METHOTREXATE [Concomitant]
     Dosage: 2.5 mg, UNK
  6. VITAMIN B12                        /00056201/ [Concomitant]
     Dosage: 100 UNK, UNK
  7. VITAMIN D /00107901/ [Concomitant]
     Dosage: 50 UNK, UNK
  8. TRAMADOL [Concomitant]
     Dosage: 50 mg, UNK

REACTIONS (2)
  - Musculoskeletal stiffness [Unknown]
  - Arthralgia [Unknown]
